FAERS Safety Report 16083949 (Version 2)
Quarter: 2020Q4

REPORT INFORMATION
  Report Type: Spontaneous
  Country: US (occurrence: US)
  Receive Date: 20190318
  Receipt Date: 20201026
  Transmission Date: 20210113
  Serious: No
  Sender: FDA-Public Use
  Company Number: US-PFIZER INC-2019107975

PATIENT
  Age: 27 Year
  Sex: Male

DRUGS (1)
  1. SOMAVERT [Suspect]
     Active Substance: PEGVISOMANT
     Indication: ACROMEGALY
     Dosage: 15 MG, DAILY
     Route: 058
     Dates: start: 2015

REACTIONS (4)
  - Memory impairment [Unknown]
  - Arthralgia [Unknown]
  - Insulin-like growth factor increased [Unknown]
  - Product dose omission issue [Unknown]
